FAERS Safety Report 10717855 (Version 1)
Quarter: 2015Q1

REPORT INFORMATION
  Report Type: Spontaneous
  Country: DE (occurrence: DE)
  Receive Date: 20150116
  Receipt Date: 20150116
  Transmission Date: 20150721
  Serious: Yes (Hospitalization, Other)
  Sender: FDA-Public Use
  Company Number: DE-ABBVIE-14P-062-1304186-00

PATIENT
  Age: 75 Year
  Sex: Male

DRUGS (2)
  1. DUODOPA [Suspect]
     Active Substance: CARBIDOPA\LEVODOPA
     Indication: PARKINSON^S DISEASE
     Dosage: MD 6.5ML,CR2.5ML/H,ED1.6ML, 16H THERAPY
     Route: 050
  2. DUODOPA [Suspect]
     Active Substance: CARBIDOPA\LEVODOPA
     Dosage: CRD DECREASED
     Route: 050
     Dates: start: 201411

REACTIONS (3)
  - Overdose [Unknown]
  - Parkinson^s disease [Recovering/Resolving]
  - Hyperkinesia [Recovering/Resolving]

NARRATIVE: CASE EVENT DATE: 20141101
